FAERS Safety Report 21533403 (Version 2)
Quarter: 2024Q2

REPORT INFORMATION
  Report Type: Report from Study
  Country: US (occurrence: US)
  Receive Date: 20221101
  Receipt Date: 20240404
  Transmission Date: 20240715
  Serious: No
  Sender: FDA-Public Use
  Company Number: US-ABBVIE-4152711

PATIENT
  Sex: Female

DRUGS (3)
  1. RINVOQ [Suspect]
     Active Substance: UPADACITINIB
     Indication: Product used for unknown indication
     Route: 048
  2. HERPES SIMPLEX VACCINE [Suspect]
     Active Substance: HERPES SIMPLEX VACCINE
     Indication: Product used for unknown indication
     Route: 065
  3. INFLUENZA VIRUS VACCINE [Suspect]
     Active Substance: INFLUENZA VIRUS VACCINE
     Indication: Product used for unknown indication
     Route: 065

REACTIONS (4)
  - Immune system disorder [Unknown]
  - Immunisation reaction [Unknown]
  - Herpes zoster [Unknown]
  - Influenza [Unknown]
